FAERS Safety Report 9080152 (Version 1)
Quarter: 2013Q1

REPORT INFORMATION
  Report Type: Report from Study
  Country: US (occurrence: US)
  Receive Date: 20130130
  Receipt Date: 20130130
  Transmission Date: 20140127
  Serious: No
  Sender: FDA-Public Use
  Company Number: US-ABBOTT-12P-163-0970293-00

PATIENT
  Age: 68 Year
  Sex: Male

DRUGS (16)
  1. HUMIRA 40 MG/0.8 ML PEN [Suspect]
     Indication: PSORIASIS
     Dates: start: 20120711
  2. MULTIVITAMIN [Concomitant]
     Indication: PRODUCT USED FOR UNKNOWN INDICATION
     Dosage: DAILY
  3. TOPROL [Concomitant]
     Indication: CARDIOVASCULAR DISORDER
     Dosage: 50MG DAILY
  4. ZOLOFT [Concomitant]
     Indication: ANXIETY
     Dosage: 50MG DAILY
  5. NORVASC [Concomitant]
     Indication: BLOOD PRESSURE
     Dosage: 20MG DAILY
  6. WELLBUTRIN [Concomitant]
     Indication: ANXIETY
     Dosage: 150MG DAILY
  7. SYNTHROID [Concomitant]
     Indication: THYROID DISORDER
     Dosage: ALTERNATING DAILY
  8. SYNTHROID [Concomitant]
     Dosage: ALTERNATING DAILY
  9. CRESTOR [Concomitant]
     Indication: BLOOD CHOLESTEROL
     Dosage: ALTERNATING DAILY
  10. CRESTOR [Concomitant]
     Dosage: ALTERNATING DAILY
  11. VITAMIN C [Concomitant]
     Indication: VITAMIN SUPPLEMENTATION
     Dosage: DAILY
  12. LISINOPRIL [Concomitant]
     Indication: BLOOD PRESSURE
     Dosage: 5MG DAILY
  13. PANTOPRAZOLE [Concomitant]
     Indication: PRODUCT USED FOR UNKNOWN INDICATION
     Dosage: 40MG DAILY
  14. WARFARIN [Concomitant]
     Indication: CARDIAC PACEMAKER INSERTION
     Dosage: 2MG ALTERNATING DAILY
  15. WARFARIN [Concomitant]
     Indication: THROMBOSIS PROPHYLAXIS
     Dosage: 4MG ALTERNATING DAILY
  16. TRILIPIX [Concomitant]
     Indication: PRODUCT USED FOR UNKNOWN INDICATION
     Dosage: 135MG DAILY

REACTIONS (1)
  - Vision blurred [Recovering/Resolving]
